FAERS Safety Report 11172708 (Version 1)
Quarter: 2015Q2

REPORT INFORMATION
  Report Type: Report from Study
  Country: US (occurrence: US)
  Receive Date: 20150608
  Receipt Date: 20150608
  Transmission Date: 20150821
  Serious: No
  Sender: FDA-Public Use
  Company Number: US-AMGEN-USASL2014087693

PATIENT
  Age: 55 Year
  Sex: Female

DRUGS (14)
  1. DIPHENHYDRAMINE                    /00000402/ [Concomitant]
     Active Substance: DIPHENHYDRAMINE
     Dosage: 25 MG, ONCE
     Route: 042
     Dates: start: 20140717
  2. DIPHENHYDRAMINE                    /00000402/ [Concomitant]
     Active Substance: DIPHENHYDRAMINE
     Dosage: 25 MG, UNK
     Route: 042
     Dates: start: 20141002, end: 20141002
  3. DIPHENHYDRAMINE                    /00000402/ [Concomitant]
     Active Substance: DIPHENHYDRAMINE
     Dosage: UNK
  4. FERROUS SULFATE [Concomitant]
     Active Substance: FERROUS SULFATE\FERROUS SULFATE, DRIED
     Dosage: 27 MG, 1 TABLET DAILY
     Route: 048
  5. ONDANSETRON                        /00955302/ [Concomitant]
     Dosage: 16 MG, UNK
     Route: 042
     Dates: start: 20141002, end: 20141002
  6. DOCETAXEL. [Concomitant]
     Active Substance: DOCETAXEL
     Dosage: 60 MG, UNK
     Route: 042
     Dates: start: 20141002, end: 20141002
  7. PROCHLORPERAZINE MALEATE. [Concomitant]
     Active Substance: PROCHLORPERAZINE MALEATE
     Dosage: 10 MG, EVERY 6 HOURS PRN
     Route: 048
  8. ALBUTEROL SULFATE. [Concomitant]
     Active Substance: ALBUTEROL SULFATE
     Dosage: TWICE A DAY PRN
  9. SOTALOL. [Concomitant]
     Active Substance: SOTALOL
     Dosage: 120 MG, TWICE A DAY
     Route: 048
  10. PROCRIT [Suspect]
     Active Substance: ERYTHROPOIETIN
     Indication: ANAEMIA
     Dosage: 40000 UNIT, QWK
     Route: 058
     Dates: start: 20140925
  11. MAGNESIUM OXIDE. [Concomitant]
     Active Substance: MAGNESIUM OXIDE
     Dosage: 400 MG, 1 CAPSULE DAILY
     Route: 048
  12. ONDANSETRON                        /00955302/ [Concomitant]
     Dosage: 16 MG, ONCE
     Route: 042
     Dates: start: 20140106
  13. WARFARIN [Concomitant]
     Active Substance: WARFARIN
     Dosage: 2.5 MG, DAILY
     Route: 048
  14. DOCETAXEL. [Concomitant]
     Active Substance: DOCETAXEL
     Dosage: 60 MG, ONCE
     Route: 042
     Dates: start: 20140717

REACTIONS (1)
  - Haemoglobin decreased [Unknown]

NARRATIVE: CASE EVENT DATE: 20141002
